FAERS Safety Report 11560902 (Version 2)
Quarter: 2015Q4

REPORT INFORMATION
  Report Type: Spontaneous
  Country: US (occurrence: US)
  Receive Date: 20150916
  Receipt Date: 20151027
  Transmission Date: 20160304
  Serious: No
  Sender: FDA-Public Use
  Company Number: US-ELI_LILLY_AND_COMPANY-US200810002068

PATIENT
  Sex: Female

DRUGS (1)
  1. FORTEO [Suspect]
     Active Substance: TERIPARATIDE
     Dosage: 20 UG, DAILY (1/D)
     Dates: start: 200809

REACTIONS (4)
  - Injection site erythema [Not Recovered/Not Resolved]
  - Haematoma [Unknown]
  - Injection site haematoma [Not Recovered/Not Resolved]
  - Injection site bruising [Not Recovered/Not Resolved]
